FAERS Safety Report 15250748 (Version 1)
Quarter: 2018Q3

REPORT INFORMATION
  Report Type: Spontaneous
  Country: US (occurrence: US)
  Receive Date: 20180716
  Receipt Date: 20180716
  Transmission Date: 20181010
  Serious: Yes (Disabling)
  Sender: FDA-Public Use
  Company Number: None

PATIENT
  Age: 66 Year
  Sex: Female

DRUGS (2)
  1. FLUTICASONE PROPIONATE NASAL SPRAY 50MCG [Suspect]
     Active Substance: FLUTICASONE PROPIONATE
     Indication: HYPERSENSITIVITY
     Route: 055
  2. FLUTICASONE PROPIONATE NASAL SPRAY 50MCG [Suspect]
     Active Substance: FLUTICASONE PROPIONATE
     Indication: SINUS DISORDER
     Route: 055

REACTIONS (5)
  - Sinusitis [None]
  - Laryngeal oedema [None]
  - Dyspnoea [None]
  - Inflammation [None]
  - Headache [None]

NARRATIVE: CASE EVENT DATE: 20171015
